FAERS Safety Report 14845172 (Version 3)
Quarter: 2018Q3

REPORT INFORMATION
  Report Type: Spontaneous
  Country: US (occurrence: US)
  Receive Date: 20180504
  Receipt Date: 20180711
  Transmission Date: 20181010
  Serious: Yes (Hospitalization, Other)
  Sender: FDA-Public Use
  Company Number: US-BIOGEN-2018BI00569403

PATIENT
  Age: 4 Month
  Sex: Male
  Weight: 6 kg

DRUGS (9)
  1. SPINRAZA [Suspect]
     Active Substance: NUSINERSEN
     Dosage: DOSE 1 ON 14 FEB 2018, DOSE 2 ON 01 MAR 2018, DOSE ON 15 MAR 2018, AND DOSE ON 09 APR 2018
     Route: 037
     Dates: start: 20180214, end: 20180214
  2. SODIUM CHLORIDE 3% [Concomitant]
     Active Substance: SODIUM CHLORIDE
     Indication: RESPIRATORY THERAPY
     Dosage: BY NEBULIZATION
     Route: 065
  3. GLYCOPYRROLATE. [Concomitant]
     Active Substance: GLYCOPYRROLATE
     Indication: SALIVARY HYPERSECRETION
     Dosage: LOW?DOSE, 1 MG/ML, BY FEEDING TUBE
     Route: 065
  4. SPINRAZA [Suspect]
     Active Substance: NUSINERSEN
     Dosage: FOURTH LOADING DOSE; 25 DAYS AFTER THE THIRD LOADING DOSE
     Route: 037
     Dates: start: 20180409
  5. XOPENEX [Concomitant]
     Active Substance: LEVALBUTEROL HYDROCHLORIDE
     Indication: RESPIRATORY THERAPY
     Dosage: 0.63 MG/3 ML, NEBULIZATION
     Route: 065
  6. PULMOZYME [Concomitant]
     Active Substance: DORNASE ALFA
     Indication: PRODUCT USED FOR UNKNOWN INDICATION
     Dosage: 1 MG/ML, BY NEBULIZATION
     Route: 065
  7. SPINRAZA [Suspect]
     Active Substance: NUSINERSEN
     Indication: SPINAL MUSCULAR ATROPHY
     Dosage: SECOND LOADING DOSE ON 01 MAR 2018, THIRD LOADING DOSE ON 15 MAR 2018
     Route: 037
     Dates: start: 20180215, end: 20180315
  8. ALBUTEROL. [Concomitant]
     Active Substance: ALBUTEROL
     Indication: PRODUCT USED FOR UNKNOWN INDICATION
     Dosage: 5 MG/ML, BY NEBULIZER
     Route: 050
     Dates: start: 20171227
  9. VITAMIN D [Concomitant]
     Active Substance: CHOLECALCIFEROL
     Indication: PRODUCT USED FOR UNKNOWN INDICATION
     Route: 065

REACTIONS (7)
  - Prescribed overdose [Recovered/Resolved]
  - Hydrocephalus [Recovered/Resolved]
  - Chronic respiratory failure [Unknown]
  - Enterovirus infection [Recovered/Resolved]
  - Respiratory failure [Recovered/Resolved]
  - Rhinovirus infection [Recovered/Resolved]
  - Malnutrition [Unknown]

NARRATIVE: CASE EVENT DATE: 20180409
